FAERS Safety Report 10483801 (Version 1)
Quarter: 2014Q3

REPORT INFORMATION
  Report Type: Spontaneous
  Country: IT (occurrence: IT)
  Receive Date: 20140930
  Receipt Date: 20140930
  Transmission Date: 20150326
  Serious: Yes (Other)
  Sender: FDA-Public Use
  Company Number: IT-ASTRAZENECA-2014SE72519

PATIENT
  Age: 25481 Day
  Sex: Male
  Weight: 80 kg

DRUGS (6)
  1. TRIATEC [Concomitant]
     Active Substance: RAMIPRIL
  2. ATORVASTIN [Concomitant]
     Active Substance: ATORVASTATIN
  3. BRILIQUE [Suspect]
     Active Substance: TICAGRELOR
     Route: 048
     Dates: start: 20140727, end: 20140819
  4. CARDIOASPIRIN [Concomitant]
     Active Substance: ASPIRIN
  5. CONGESCOR (BISOPROLOL HEMIFUMARATE) [Concomitant]
     Dosage: 1.25 TABLET
  6. LANSOPRAZOLE. [Concomitant]
     Active Substance: LANSOPRAZOLE

REACTIONS (2)
  - Urticaria [Recovered/Resolved with Sequelae]
  - Toxic skin eruption [Recovered/Resolved with Sequelae]

NARRATIVE: CASE EVENT DATE: 20140814
